FAERS Safety Report 15905807 (Version 1)
Quarter: 2019Q1

REPORT INFORMATION
  Report Type: Spontaneous
  Country: US (occurrence: US)
  Receive Date: 20190202
  Receipt Date: 20190202
  Transmission Date: 20190417
  Serious: Yes (Death, Hospitalization)
  Sender: FDA-Public Use
  Company Number: None

PATIENT
  Age: 81 Year
  Sex: Male

DRUGS (1)
  1. FENTANYL TRANSDERMAL SYSTEM [Suspect]
     Active Substance: FENTANYL
     Indication: PAIN
     Dosage: ?          QUANTITY:1 PATCH(ES);OTHER FREQUENCY:1 EVERY 72 HRS;?
     Route: 061
     Dates: start: 20180630, end: 20180701

REACTIONS (2)
  - Drug-disease interaction [None]
  - Respiration abnormal [None]

NARRATIVE: CASE EVENT DATE: 20180701
